FAERS Safety Report 7745880-7 (Version None)
Quarter: 2011Q3

REPORT INFORMATION
  Report Type: 
  Country: None (occurrence: None)
  Receive Date: 20110830
  Receipt Date: 20110822
  Transmission Date: 20111222
  Serious: Yes (Hospitalization)
  Sender: FDA-Public Use
  Company Number: WAES 1107USA02925

PATIENT
  Age: 71 Year
  Sex: Female
  Weight: 49.8957 kg

DRUGS (20)
  1. PYRIDOXINE HCL [Suspect]
     Dosage: 50 MG/1X/PO
     Route: 048
     Dates: start: 20110704, end: 20110704
  2. ASPIRIN [Concomitant]
  3. ATENOLOL [Concomitant]
  4. INDAPAMIDE [Concomitant]
  5. LOSARTAN POTASSIUM [Concomitant]
  6. METFORMIN HCL [Concomitant]
  7. METOPROLOL TARTRATE [Suspect]
     Dosage: 12.5 MG/1X/PO
     Route: 048
     Dates: start: 20110704, end: 20110704
  8. DILTIAZEM HCL [Concomitant]
  9. ISOSORBIDE MONONITRATE [Suspect]
     Dosage: 20 MG/1X/PO
     Route: 048
     Dates: start: 20110704, end: 20110704
  10. PEPCID [Suspect]
     Dosage: 20 MG/1X/PO
     Route: 048
     Dates: start: 20110704, end: 20110704
  11. TAB BLINDED THERAPY UNK [Suspect]
     Indication: OSTEOPOROSIS POSTMENOPAUSAL
     Dosage: 1TAB/WKY/PO
     Route: 048
     Dates: start: 20100122
  12. TAB BLINDED THERAPY UNK [Suspect]
     Indication: OSTEOPOROSIS POSTMENOPAUSAL
     Dosage: 1TAB/WKY/PO
     Route: 048
     Dates: start: 20080217, end: 20080912
  13. TAB BLINDED THERAPY UNK [Suspect]
     Indication: OSTEOPOROSIS POSTMENOPAUSAL
     Dosage: 1TAB/WKY/PO
     Route: 048
     Dates: start: 20080926, end: 20090207
  14. TAB BLINDED THERAPY UNK [Suspect]
     Indication: OSTEOPOROSIS POSTMENOPAUSAL
     Dosage: 1TAB/WKY/PO
     Route: 048
     Dates: start: 20090220, end: 20090626
  15. TAB BLINDED THERAPY UNK [Suspect]
     Indication: OSTEOPOROSIS POSTMENOPAUSAL
     Dosage: 1TAB/WKY/PO
     Route: 048
     Dates: start: 20090710, end: 20100108
  16. TAB CHOLECALCIFEROL 2800 IU [Suspect]
     Indication: MEDICAL DIET
     Dosage: 5600 IU/WKY/PO
     Route: 048
     Dates: start: 20080125
  17. UREA CREAM [Concomitant]
  18. AMLODIPINE BESYLATE [Concomitant]
  19. RIVASTIGMINE [Suspect]
     Dosage: 4.5 MG/1X/PO
     Route: 048
     Dates: start: 20110704, end: 20110704
  20. CALCIUM CARBONATE [Suspect]
     Indication: ROUTINE HEALTH MAINTENANCE
     Dosage: 600 MG/BID/PO
     Route: 048
     Dates: start: 20080125

REACTIONS (9)
  - DIZZINESS [None]
  - RASH [None]
  - WRONG DRUG ADMINISTERED [None]
  - BLOOD GLUCOSE INCREASED [None]
  - HYPERLIPIDAEMIA [None]
  - VOMITING [None]
  - ARTHROPOD STING [None]
  - GASTRITIS [None]
  - MUSCLE STRAIN [None]
